FAERS Safety Report 7287573-9 (Version None)
Quarter: 2011Q1

REPORT INFORMATION
  Report Type: 
  Country: None (occurrence: None)
  Receive Date: 20110211
  Receipt Date: 20110201
  Transmission Date: 20110831
  Serious: Yes (Hospitalization)
  Sender: FDA-Public Use
  Company Number: JP-JNJFOC-20110201681

PATIENT
  Age: 50 Year
  Sex: Male
  Weight: 58 kg

DRUGS (18)
  1. ZETIA [Concomitant]
     Indication: HYPERLIPIDAEMIA
     Dosage: START DATE UNKNOWN, BEFORE THE START OF INFLIXIMAB THERAPY
     Route: 048
  2. MEROPENEM HYDRATE [Concomitant]
  3. EPADEL [Concomitant]
     Indication: HYPERLIPIDAEMIA
     Dosage: START DATE UNKNOWN, BEFORE THE START OF INFLIXIMAB THERAPY
     Route: 048
  4. REMICADE [Suspect]
     Indication: PSORIASIS
     Route: 042
  5. REMICADE [Suspect]
     Route: 042
  6. URSO 250 [Concomitant]
     Indication: HEPATIC FUNCTION ABNORMAL
     Dosage: START DATE UNKNOWN, BEFORE THE START OF INFLIXIMAB THERAPY
     Route: 048
  7. REMICADE [Suspect]
     Route: 042
  8. REMICADE [Suspect]
     Route: 042
  9. URALYT-U [Concomitant]
     Indication: HYPERURICAEMIA
     Dosage: START DATE UNKNOWN, BEFORE THE START OF INFLIXIMAB THERAPY
     Route: 048
  10. ZYLORIC [Concomitant]
     Indication: HYPERURICAEMIA
     Dosage: START DATE UNKNOWN, BEFORE THE START OF INFLIXIMAB THERAPY
     Route: 048
  11. NEORAL [Concomitant]
     Indication: PSORIASIS
     Route: 048
  12. EPADEL [Concomitant]
     Route: 048
  13. PYDOXAL [Concomitant]
     Indication: PROPHYLAXIS
     Route: 048
  14. OXAROL [Concomitant]
     Indication: PSORIASIS
  15. REMICADE [Suspect]
     Route: 042
  16. ISCOTIN [Concomitant]
     Indication: ANTIBIOTIC PROPHYLAXIS
     Route: 048
  17. ALLELOCK [Concomitant]
     Indication: PSORIASIS
     Route: 048
  18. ANTEBATE [Concomitant]
     Indication: PSORIASIS

REACTIONS (1)
  - PANCREATITIS ACUTE [None]
